FAERS Safety Report 8264561-7 (Version None)
Quarter: 2012Q2

REPORT INFORMATION
  Report Type: 
  Country: None (occurrence: None)
  Receive Date: 20120406
  Receipt Date: 20120328
  Transmission Date: 20120825
  Serious: Yes (Other)
  Sender: FDA-Public Use
  Company Number: US-UCBSA-054387

PATIENT
  Age: 11 Year
  Sex: Male
  Weight: 24.9 kg

DRUGS (4)
  1. NO CONCOMITANT MEDICATION [Concomitant]
  2. KEPPRA [Suspect]
     Dosage: IN AM AND PM
     Route: 048
     Dates: start: 20120101, end: 20120101
  3. KEPPRA [Suspect]
     Indication: CONVULSION
     Dosage: IN AM AND PM
     Route: 048
     Dates: start: 20120201, end: 20120101
  4. KEPPRA [Suspect]
     Dosage: IN AM AND PM
     Route: 048
     Dates: start: 20110801, end: 20120101

REACTIONS (8)
  - OROPHARYNGEAL PAIN [None]
  - ABDOMINAL PAIN UPPER [None]
  - NEUROPATHY PERIPHERAL [None]
  - GRAND MAL CONVULSION [None]
  - CHEST PAIN [None]
  - MOVEMENT DISORDER [None]
  - MUSCLE SPASMS [None]
  - VOMITING [None]
